FAERS Safety Report 9329453 (Version 4)
Quarter: 2014Q1

REPORT INFORMATION
  Report Type: Report from Study
  Country: JP (occurrence: JP)
  Receive Date: 20130604
  Receipt Date: 20140318
  Transmission Date: 20141002
  Serious: Yes (Other)
  Sender: FDA-Public Use
  Company Number: JP-JNJFOC-20130522590

PATIENT
  Age: 32 Year
  Sex: Female
  Weight: 41 kg

DRUGS (12)
  1. STELARA [Suspect]
     Indication: PSORIASIS
     Route: 058
     Dates: start: 20121102, end: 20121102
  2. STELARA [Suspect]
     Indication: PSORIASIS
     Route: 058
     Dates: start: 20121130, end: 20121130
  3. STELARA [Suspect]
     Indication: PSORIASIS
     Route: 058
     Dates: start: 20130221, end: 20130221
  4. STELARA [Suspect]
     Indication: PSORIASIS
     Route: 058
     Dates: start: 20130808, end: 20130808
  5. STELARA [Suspect]
     Indication: PSORIASIS
     Route: 058
     Dates: start: 20131031
  6. STELARA [Suspect]
     Indication: PSORIASIS
     Route: 058
     Dates: start: 20130516, end: 20130516
  7. OXAROL [Concomitant]
     Indication: PSORIASIS
     Route: 048
  8. ANTEBATE [Concomitant]
     Indication: PSORIASIS
     Route: 048
  9. LIDOMEX [Concomitant]
     Indication: PSORIASIS
     Route: 061
     Dates: start: 20130125
  10. CICLOSPORIN [Concomitant]
     Indication: PSORIASIS
     Route: 048
     Dates: end: 20121129
  11. ALESION [Concomitant]
     Indication: PSORIASIS
     Route: 048
     Dates: start: 20121102, end: 20121129
  12. ZITHROMAC [Concomitant]
     Indication: PNEUMONIA
     Route: 048
     Dates: start: 20130418, end: 20130515

REACTIONS (1)
  - Eosinophilic pneumonia [Recovering/Resolving]
